FAERS Safety Report 13057122 (Version 2)
Quarter: 2017Q1

REPORT INFORMATION
  Report Type: Spontaneous
  Country: HU (occurrence: HU)
  Receive Date: 20161222
  Receipt Date: 20170120
  Transmission Date: 20170428
  Serious: Yes (Other)
  Sender: FDA-Public Use
  Company Number: HU-FRESENIUS KABI-FK201610096

PATIENT
  Age: 54 Year
  Sex: Female

DRUGS (3)
  1. VEPESID [Suspect]
     Active Substance: ETOPOSIDE
     Indication: OVARIAN CANCER STAGE IV
     Route: 065
     Dates: start: 201201
  2. CISPLATIN (MANUFACTURER UNKNOWN) [Suspect]
     Active Substance: CISPLATIN
     Indication: OVARIAN CANCER STAGE IV
     Route: 065
     Dates: start: 201201
  3. IFOSFAMIDE (MANUFACTURER UNKNOWN) [Suspect]
     Active Substance: IFOSFAMIDE
     Indication: OVARIAN CANCER STAGE IV
     Route: 065
     Dates: start: 201201

REACTIONS (8)
  - Purpura [Unknown]
  - Abdominal pain [Unknown]
  - Vomiting [Unknown]
  - Nausea [Unknown]
  - Malaise [Unknown]
  - Thrombocytopenia [Unknown]
  - Neutropenia [Unknown]
  - Diarrhoea [Unknown]
